FAERS Safety Report 8227837 (Version 5)
Quarter: 2015Q3

REPORT INFORMATION
  Report Type: Spontaneous
  Country: US (occurrence: US)
  Receive Date: 20111103
  Receipt Date: 20150910
  Transmission Date: 20151125
  Serious: Yes (Other)
  Sender: FDA-Public Use
  Company Number: US-ASTRAZENECA-2011SE64471

PATIENT
  Age: 55 Year
  Sex: Female
  Weight: 59 kg

DRUGS (25)
  1. NEXIUM [Suspect]
     Active Substance: ESOMEPRAZOLE MAGNESIUM
     Indication: OESOPHAGEAL CARCINOMA
     Route: 048
     Dates: start: 2010
  2. NEXIUM [Suspect]
     Active Substance: ESOMEPRAZOLE MAGNESIUM
     Indication: DYSPEPSIA
     Route: 048
  3. SEROQUEL [Suspect]
     Active Substance: QUETIAPINE FUMARATE
     Indication: DEPRESSION
     Route: 048
     Dates: start: 2008
  4. ATIVAN [Concomitant]
     Active Substance: LORAZEPAM
     Indication: DEPRESSION
     Route: 048
     Dates: start: 2007
  5. MORPHINE EXTENDED RELEASE [Concomitant]
     Active Substance: MORPHINE
     Indication: PAIN
     Route: 048
     Dates: start: 2009
  6. FIORICET [Concomitant]
     Active Substance: ACETAMINOPHEN\BUTALBITAL\CAFFEINE
     Indication: HEADACHE
     Dosage: AS NEEDED
     Route: 048
  7. MORPHINE EXTENDED RELEASE [Concomitant]
     Active Substance: MORPHINE
     Indication: NERVE INJURY
     Route: 048
     Dates: start: 2009
  8. FIORICET [Concomitant]
     Active Substance: ACETAMINOPHEN\BUTALBITAL\CAFFEINE
     Indication: MIGRAINE
     Dosage: AS NEEDED
     Route: 048
  9. XANAX [Concomitant]
     Active Substance: ALPRAZOLAM
     Indication: ANXIETY
  10. CRESTOR [Suspect]
     Active Substance: ROSUVASTATIN CALCIUM
     Indication: BLOOD CHOLESTEROL INCREASED
     Route: 048
     Dates: start: 2009
  11. MORPHINE EXTENDED RELEASE [Concomitant]
     Active Substance: MORPHINE
     Indication: FIBROMYALGIA
     Route: 048
     Dates: start: 2009
  12. CARAFATE [Concomitant]
     Active Substance: SUCRALFATE
     Indication: OESOPHAGEAL DISORDER
     Dosage: 10 ML TAKEN EVERY 4 HOURS
     Route: 048
  13. XANAX [Concomitant]
     Active Substance: ALPRAZOLAM
     Indication: DEPRESSION
  14. NEXIUM [Suspect]
     Active Substance: ESOMEPRAZOLE MAGNESIUM
     Indication: OESOPHAGEAL CARCINOMA
     Route: 048
  15. CRESTOR [Suspect]
     Active Substance: ROSUVASTATIN CALCIUM
     Indication: HYPERTENSION
     Route: 048
     Dates: start: 2009
  16. MORPHINE FAST ACTING [Concomitant]
     Indication: PAIN
     Route: 048
     Dates: start: 2008
  17. ASPIRIN. [Concomitant]
     Active Substance: ASPIRIN
     Indication: CARDIAC DISORDER
     Route: 048
  18. ZOLOFT [Concomitant]
     Active Substance: SERTRALINE HYDROCHLORIDE
     Indication: DEPRESSION
     Route: 048
  19. SEROQUEL [Suspect]
     Active Substance: QUETIAPINE FUMARATE
     Indication: NERVE INJURY
     Route: 048
     Dates: start: 2008
  20. PHENERGAN [Concomitant]
     Active Substance: PROMETHAZINE HYDROCHLORIDE
     Indication: NAUSEA
     Route: 048
  21. NITROGLYCERIN. [Concomitant]
     Active Substance: NITROGLYCERIN
     Dosage: AS NEEDED EVERY 4-6 HOURS
     Route: 048
  22. LAMICTAL [Concomitant]
     Active Substance: LAMOTRIGINE
     Indication: SEIZURE
     Route: 048
     Dates: start: 201109
  23. LAMICTAL [Concomitant]
     Active Substance: LAMOTRIGINE
     Indication: NERVE INJURY
     Route: 048
     Dates: start: 201109
  24. NEXIUM [Suspect]
     Active Substance: ESOMEPRAZOLE MAGNESIUM
     Indication: DYSPEPSIA
     Route: 048
     Dates: start: 2010
  25. ATENOLOL. [Concomitant]
     Active Substance: ATENOLOL
     Indication: HYPERTENSION
     Route: 048
     Dates: start: 2010

REACTIONS (13)
  - Paraesthesia [Unknown]
  - Oesophageal carcinoma [Unknown]
  - Drug ineffective [Unknown]
  - Lower limb fracture [Unknown]
  - Myocardial infarction [Unknown]
  - Pain [Unknown]
  - Amnesia [Unknown]
  - Feeling abnormal [Unknown]
  - Intentional product misuse [Unknown]
  - Off label use [Unknown]
  - Adverse event [Unknown]
  - Dyspepsia [Unknown]
  - Retching [Unknown]

NARRATIVE: CASE EVENT DATE: 20111020
